FAERS Safety Report 6839450-2 (Version None)
Quarter: 2010Q3

REPORT INFORMATION
  Report Type: 
  Country: None (occurrence: None)
  Receive Date: 20100714
  Receipt Date: 20090812
  Transmission Date: 20110219
  Serious: No
  Sender: FDA-Public Use
  Company Number: A0787126A

PATIENT
  Age: 21 Year
  Sex: Female

DRUGS (1)
  1. FLOVENT [Suspect]
     Indication: ASTHMA
     Dosage: 1PUFF PER DAY
     Route: 055
     Dates: start: 20060101

REACTIONS (5)
  - DRUG INEFFECTIVE [None]
  - FATIGUE [None]
  - HYPERSOMNIA [None]
  - PRODUCT QUALITY ISSUE [None]
  - VISION BLURRED [None]
